FAERS Safety Report 5885420-0 (Version None)
Quarter: 2008Q3

REPORT INFORMATION
  Report Type: 
  Country: None (occurrence: None)
  Receive Date: 20080915
  Receipt Date: 20080915
  Transmission Date: 20090109
  Serious: Yes (Life-Threatening, Other)
  Sender: FDA-Public Use
  Company Number: None

PATIENT
  Sex: Female
  Weight: 65.7716 kg

DRUGS (4)
  1. ZOLEDRONIC ACID [Suspect]
     Indication: OSTEOPOROSIS PROPHYLAXIS
     Dosage: 5MG  4X/YEAR IV DRIP
     Route: 041
     Dates: start: 20050515, end: 20060915
  2. ZOLEDRONIC ACID [Suspect]
     Indication: PROPHYLAXIS
     Dosage: 5MG  4X/YEAR IV DRIP
     Route: 041
     Dates: start: 20050515, end: 20060915
  3. ZOLEDRONIC ACID [Suspect]
     Indication: RECURRENT CANCER
     Dosage: 5MG  4X/YEAR IV DRIP
     Route: 041
     Dates: start: 20050515, end: 20060915
  4. CMF [Concomitant]

REACTIONS (6)
  - ACTIVITIES OF DAILY LIVING IMPAIRED [None]
  - ARTHRALGIA [None]
  - BONE PAIN [None]
  - GAIT DISTURBANCE [None]
  - HEART RATE INCREASED [None]
  - PALPITATIONS [None]
